FAERS Safety Report 9473655 (Version 2)
Quarter: 2013Q3

REPORT INFORMATION
  Report Type: Spontaneous
  Country: US (occurrence: US)
  Receive Date: 20130823
  Receipt Date: 20130823
  Transmission Date: 20140515
  Serious: Yes (Other)
  Sender: FDA-Public Use
  Company Number: US-BRISTOL-MYERS SQUIBB COMPANY-16839680

PATIENT
  Age: 73 Year
  Sex: Male
  Weight: 86 kg

DRUGS (3)
  1. SPRYCEL [Suspect]
     Indication: CHRONIC MYELOID LEUKAEMIA
     Dosage: FORMULATION: TABLETS.
     Dates: start: 201203
  2. LOPRIL [Concomitant]
  3. ALLOPURINOL [Concomitant]

REACTIONS (1)
  - Pericardial effusion [Recovered/Resolved]
